FAERS Safety Report 13300834 (Version 5)
Quarter: 2018Q4

REPORT INFORMATION
  Report Type: Spontaneous
  Country: US (occurrence: US)
  Receive Date: 20170307
  Receipt Date: 20181103
  Transmission Date: 20190204
  Serious: Yes (Other)
  Sender: FDA-Public Use
  Company Number: US-TEVA-747262ACC

PATIENT
  Sex: Female

DRUGS (1)
  1. PROVIGIL [Suspect]
     Active Substance: MODAFINIL
     Route: 065

REACTIONS (8)
  - Speech disorder [Unknown]
  - Dizziness [Unknown]
  - Suicidal ideation [Unknown]
  - Depressed mood [Unknown]
  - Vertigo [Unknown]
  - Balance disorder [Unknown]
  - Feeling abnormal [Unknown]
  - Eye movement disorder [Unknown]
